FAERS Safety Report 18703353 (Version 1)
Quarter: 2021Q1

REPORT INFORMATION
  Report Type: Spontaneous
  Country: US (occurrence: US)
  Receive Date: 20210106
  Receipt Date: 20210106
  Transmission Date: 20210419
  Serious: Yes (Death, Hospitalization)
  Sender: FDA-Public Use
  Company Number: US-ALVOGEN-2021-ALVOGEN-115758

PATIENT
  Age: 56 Year
  Sex: Male

DRUGS (3)
  1. LISINOPRIL. [Suspect]
     Active Substance: LISINOPRIL
     Indication: SUICIDE ATTEMPT
     Dosage: ROUTE OF ADMINISTRATION: INGST
  2. MELOXICAM. [Suspect]
     Active Substance: MELOXICAM
     Indication: SUICIDE ATTEMPT
     Dosage: ROUTE OF ADMINISTRATION: INGST
  3. DICLOFENAC [Suspect]
     Active Substance: DICLOFENAC
     Indication: SUICIDE ATTEMPT
     Dosage: ROUTE OF ADMINISTRATION: INGST

REACTIONS (1)
  - Completed suicide [Fatal]
